FAERS Safety Report 17588733 (Version 2)
Quarter: 2020Q4

REPORT INFORMATION
  Report Type: Spontaneous
  Country: US (occurrence: US)
  Receive Date: 20200327
  Receipt Date: 20201017
  Transmission Date: 20210113
  Serious: Yes (Hospitalization, Disabling, Other)
  Sender: FDA-Public Use
  Company Number: US-LUPIN PHARMACEUTICALS INC.-2020-01377

PATIENT
  Age: 33 Year
  Sex: Female

DRUGS (3)
  1. ESTROGEN [Concomitant]
     Active Substance: ESTROGENS
     Indication: ORAL CONTRACEPTION
     Dosage: UNK
     Route: 048
  2. ESCITALOPRAM [Suspect]
     Active Substance: ESCITALOPRAM OXALATE
     Indication: GENERALISED ANXIETY DISORDER
     Dosage: 10 MILLIGRAM
     Route: 065
  3. ESCITALOPRAM [Suspect]
     Active Substance: ESCITALOPRAM OXALATE
     Dosage: 20 MILLIGRAM (RAISED)
     Route: 065

REACTIONS (1)
  - Dystonia [Recovered/Resolved]
